FAERS Safety Report 5750751-1 (Version None)
Quarter: 2008Q2

REPORT INFORMATION
  Report Type: 
  Country: None (occurrence: None)
  Receive Date: 20080523
  Receipt Date: 20080523
  Transmission Date: 20081010
  Serious: Yes (Other)
  Sender: FDA-Public Use
  Company Number: None

PATIENT
  Sex: Male

DRUGS (1)
  1. OPTIRAY 350 [Suspect]
     Dosage: 100 CC IV
     Route: 042

REACTIONS (4)
  - ORAL PRURITUS [None]
  - PRURITUS [None]
  - SNEEZING [None]
  - TONGUE DISORDER [None]
